FAERS Safety Report 10233186 (Version 1)
Quarter: 2014Q2

REPORT INFORMATION
  Report Type: Spontaneous
  Country: US (occurrence: None)
  Receive Date: 20140611
  Receipt Date: 20140611
  Transmission Date: 20141212
  Serious: Yes (Hospitalization)
  Sender: FDA-Public Use
  Company Number: None

PATIENT
  Age: 37 Year
  Sex: Male
  Weight: 120.66 kg

DRUGS (2)
  1. CARBOPLATIN [Suspect]
     Dates: end: 20140519
  2. PACLITAXEL [Suspect]
     Dates: end: 20140519

REACTIONS (4)
  - Nausea [None]
  - Diarrhoea [None]
  - Dehydration [None]
  - Vomiting [None]
